FAERS Safety Report 4782907-9 (Version None)
Quarter: 2005Q3

REPORT INFORMATION
  Report Type: 
  Country: None (occurrence: None)
  Receive Date: 20050929
  Receipt Date: 20050803
  Transmission Date: 20060218
  Serious: Yes (Other)
  Sender: FDA-Public Use
  Company Number: 200517003GDDC

PATIENT
  Age: 51 Year
  Sex: Male

DRUGS (6)
  1. ARAVA [Suspect]
     Indication: OSTEOARTHRITIS
     Route: 048
     Dates: start: 20011220, end: 20050801
  2. ARAVA [Suspect]
     Indication: PSORIASIS
     Route: 048
     Dates: start: 20011220, end: 20050801
  3. METHOTREXATE [Concomitant]
     Route: 048
     Dates: start: 19970101, end: 20050801
  4. ALTACE [Concomitant]
     Dates: end: 20050801
  5. CELEBREX [Concomitant]
     Route: 048
  6. FLEXERIL [Concomitant]

REACTIONS (6)
  - ALANINE AMINOTRANSFERASE INCREASED [None]
  - ASPARTATE AMINOTRANSFERASE INCREASED [None]
  - BLOOD LACTATE DEHYDROGENASE INCREASED [None]
  - INTERSTITIAL LUNG DISEASE [None]
  - LIVER FUNCTION TEST ABNORMAL [None]
  - RESPIRATORY TRACT INFECTION [None]
